FAERS Safety Report 24428764 (Version 1)
Quarter: 2024Q4

REPORT INFORMATION
  Report Type: Spontaneous
  Country: US (occurrence: US)
  Receive Date: 20241011
  Receipt Date: 20241011
  Transmission Date: 20250115
  Serious: No
  Sender: IPSEN
  Company Number: US-IPSEN Group, Research and Development-2024-20100

PATIENT
  Sex: Female

DRUGS (2)
  1. DYSPORT [Suspect]
     Active Substance: ABOBOTULINUMTOXINA
     Indication: Skin cosmetic procedure
     Route: 065
  2. DYSPORT [Suspect]
     Active Substance: ABOBOTULINUMTOXINA
     Indication: Off label use
     Dosage: 2 WEEK LATER
     Route: 065

REACTIONS (3)
  - Periorbital swelling [Not Recovered/Not Resolved]
  - Off label use [Unknown]
  - Off label use [Unknown]
